FAERS Safety Report 20573182 (Version 1)
Quarter: 2022Q1

REPORT INFORMATION
  Report Type: Spontaneous
  Country: US (occurrence: None)
  Receive Date: 20220309
  Receipt Date: 20220309
  Transmission Date: 20220423
  Serious: Yes (Other)
  Sender: FDA-Public Use
  Company Number: US-MLMSERVICE-20220224-3396108-1

PATIENT
  Age: 67 Year
  Sex: Male

DRUGS (10)
  1. ETOPOSIDE [Suspect]
     Active Substance: ETOPOSIDE
     Indication: Haemophagocytic lymphohistiocytosis
     Route: 065
  2. ETOPOSIDE [Suspect]
     Active Substance: ETOPOSIDE
     Dosage: 2 ADDITIONAL DOSES OF ETOPOSIDE 100 MG/M2 AT AN INTERVAL OF TWICE WEEKLY
     Route: 065
  3. CEFEPIME [Concomitant]
     Active Substance: CEFEPIME HYDROCHLORIDE
     Indication: Sepsis
     Dosage: UNKNOWN
     Route: 065
  4. CEFEPIME [Concomitant]
     Active Substance: CEFEPIME HYDROCHLORIDE
     Indication: Diarrhoea
  5. VANCOMYCIN [Concomitant]
     Active Substance: VANCOMYCIN
     Indication: Sepsis
     Dosage: UNKNOWN
     Route: 065
  6. VANCOMYCIN [Concomitant]
     Active Substance: VANCOMYCIN
     Indication: Diarrhoea
  7. DEXAMETHASONE [Concomitant]
     Active Substance: DEXAMETHASONE
     Indication: Haemophagocytic lymphohistiocytosis
     Route: 065
  8. FLAGYL [Concomitant]
     Active Substance: METRONIDAZOLE\METRONIDAZOLE HYDROCHLORIDE
     Indication: Sepsis
     Dosage: UNKNOWN
     Route: 065
  9. FLAGYL [Concomitant]
     Active Substance: METRONIDAZOLE\METRONIDAZOLE HYDROCHLORIDE
     Indication: Diarrhoea
  10. DOXYCYCLINE [Concomitant]
     Active Substance: DOXYCYCLINE
     Indication: Lyme disease
     Route: 042

REACTIONS (1)
  - Neutrophil toxic granulation present [Recovered/Resolved]
